FAERS Safety Report 15747289 (Version 1)
Quarter: 2018Q4

REPORT INFORMATION
  Report Type: Spontaneous
  Country: US (occurrence: US)
  Receive Date: 20181220
  Receipt Date: 20181220
  Transmission Date: 20190205
  Serious: No
  Sender: FDA-Public Use
  Company Number: US-AVADEL SPECIALTY PHARMACEUTICALS, LLC-2018AVA00386

PATIENT
  Age: 91 Year
  Sex: Female
  Weight: 62.59 kg

DRUGS (4)
  1. ATENOLOL. [Concomitant]
     Active Substance: ATENOLOL
  2. NOCTIVA [Suspect]
     Active Substance: DESMOPRESSIN ACETATE
     Indication: NOCTURIA
     Dosage: 0.83 ?G, 1X/DAY 30 MINUTES PRIOR TO BED
     Route: 045
     Dates: start: 20180721
  3. ^ELOQUIA^ [Concomitant]
  4. LIPITOR [Concomitant]
     Active Substance: ATORVASTATIN CALCIUM

REACTIONS (5)
  - Device difficult to use [Not Recovered/Not Resolved]
  - Drug ineffective [Not Recovered/Not Resolved]
  - Sneezing [Not Recovered/Not Resolved]
  - Rhinorrhoea [Not Recovered/Not Resolved]
  - Product administration error [Not Recovered/Not Resolved]

NARRATIVE: CASE EVENT DATE: 2018
